FAERS Safety Report 7839062-8 (Version None)
Quarter: 2011Q4

REPORT INFORMATION
  Report Type: 
  Country: None (occurrence: None)
  Receive Date: 20111024
  Receipt Date: 20110901
  Transmission Date: 20120403
  Serious: Yes (Other)
  Sender: FDA-Public Use
  Company Number: PHEH2011US03509

PATIENT
  Sex: Female
  Weight: 78.912 kg

DRUGS (1)
  1. GILENYA [Suspect]
     Indication: MULTIPLE SCLEROSIS
     Dosage: 0.5 MG, QD
     Route: 048
     Dates: start: 20110901, end: 20110930

REACTIONS (7)
  - EMOTIONAL DISORDER [None]
  - PARAESTHESIA [None]
  - VIITH NERVE PARALYSIS [None]
  - HYPOAESTHESIA ORAL [None]
  - FATIGUE [None]
  - HEADACHE [None]
  - COUGH [None]
